FAERS Safety Report 9482577 (Version 2)
Quarter: 2013Q3

REPORT INFORMATION
  Report Type: Spontaneous
  Country: GB (occurrence: GB)
  Receive Date: 20130828
  Receipt Date: 20130909
  Transmission Date: 20140515
  Serious: Yes (Other)
  Sender: FDA-Public Use
  Company Number: GB-TEVA-427852ISR

PATIENT
  Age: 39 Year
  Sex: Female

DRUGS (4)
  1. TRAMADOL [Suspect]
     Indication: PAIN
     Dosage: 100 MILLIGRAM DAILY;
     Route: 048
  2. VENLAFAXINE [Suspect]
     Indication: MOOD ALTERED
     Dosage: 225 MILLIGRAM DAILY;
     Route: 048
  3. TEGRETOL [Suspect]
     Indication: PAIN
     Dosage: 400 MILLIGRAM DAILY; 200 MG, BID
     Route: 048
     Dates: start: 201303
  4. PREGABALIN [Suspect]
     Dosage: UNK UKN, UNK

REACTIONS (3)
  - Premature labour [Unknown]
  - Exposure during breast feeding [Unknown]
  - Maternal exposure during pregnancy [Unknown]
